FAERS Safety Report 10374585 (Version 1)
Quarter: 2014Q3

REPORT INFORMATION
  Report Type: Spontaneous
  Country: US (occurrence: US)
  Receive Date: 20140811
  Receipt Date: 20140811
  Transmission Date: 20150326
  Serious: Yes (Other)
  Sender: FDA-Public Use
  Company Number: US-CELGENEUS-163-21880-14080695

PATIENT
  Age: 55 Year
  Sex: Male

DRUGS (5)
  1. REVLIMID [Suspect]
     Active Substance: LENALIDOMIDE
     Indication: INFLAMMATORY PSEUDOTUMOUR
     Route: 048
  2. REVLIMID [Suspect]
     Active Substance: LENALIDOMIDE
     Indication: OFF LABEL USE
  3. MYCOPHENOLATE MOFETIL. [Suspect]
     Active Substance: MYCOPHENOLATE MOFETIL
     Indication: OCULAR MYASTHENIA
     Route: 065
  4. CYCLOSPORIN [Suspect]
     Active Substance: CYCLOSPORINE
     Indication: OCULAR MYASTHENIA
     Route: 065
  5. THALIDOMIDE [Suspect]
     Active Substance: THALIDOMIDE
     Indication: OCULAR MYASTHENIA
     Route: 048

REACTIONS (8)
  - Pulmonary mass [Recovered/Resolved]
  - Mass [Recovered/Resolved]
  - Antiacetylcholine receptor antibody positive [Recovered/Resolved]
  - Haemolytic anaemia [Recovered/Resolved]
  - Nodule [Recovered/Resolved]
  - Parophthalmia [Recovered/Resolved]
  - Lacrimal disorder [Recovered/Resolved]
  - Lymphadenopathy [Recovered/Resolved]
